FAERS Safety Report 8373878-7 (Version None)
Quarter: 2012Q2

REPORT INFORMATION
  Report Type: 
  Country: None (occurrence: None)
  Receive Date: 20120521
  Receipt Date: 20120517
  Transmission Date: 20120825
  Serious: Yes (Other)
  Sender: FDA-Public Use
  Company Number: IL-ROCHE-686520

PATIENT
  Sex: Female
  Weight: 79 kg

DRUGS (17)
  1. ACTEMRA [Suspect]
     Dosage: DOSE BLINDED. AS PER PROTOCOL THE PATIENT WAS PREVIOUSLY ENROLLED IN BLINDED STUDY WA17822
     Route: 042
  2. METHOTREXATE [Concomitant]
     Dosage: TOTAL DAILY DOSE REPORTED AS 15 MG PER WEEK
     Route: 030
  3. POTASSIUM CHLORIDE/SODIUM CHLORIDE [Concomitant]
     Dosage: START DATE REPORTED AS PREVIOUS, TOTAL DAILY DOSE: 3 GTT
  4. ACTEMRA [Suspect]
     Route: 042
  5. FOLIC ACID [Concomitant]
     Dosage: START DATE: PREVIOUS,TOTAL DAILY DOSE REPORTED AS 05 MG PER WEEK
  6. OMEPRAZOLE [Concomitant]
     Dosage: START DATE REPORTED AS PREVIOUS.
  7. CALCIUM CARBONATE/CHOLECALCIFEROL [Concomitant]
     Dosage: START DATE REPORTED AS PREVIOUS.
  8. FLUTICASONE FUROATE [Concomitant]
     Dosage: REPORTED AS: ONE PUFF AS REQUIRED
  9. PREDNISOLONE [Concomitant]
  10. ACTEMRA [Suspect]
     Route: 042
     Dates: start: 20100121, end: 20100215
  11. DESLORATADINE [Concomitant]
  12. VITAMIN D [Concomitant]
     Dosage: TOTAL DAILY DOSE 20 GU
  13. ACTEMRA [Suspect]
     Indication: RHEUMATOID ARTHRITIS
     Dosage: FORM: INFUSION SOLUTION
     Route: 042
     Dates: start: 20060109, end: 20100215
  14. ACTEMRA [Suspect]
     Route: 042
  15. ACTEMRA [Suspect]
     Route: 042
  16. METHOTREXATE [Concomitant]
     Dosage: TOTAL DAILY DOSE REPORTED AS 15 MG PER WEEK
     Route: 030
     Dates: start: 20060517, end: 20100228
  17. DILTIAZEM [Concomitant]
     Dosage: START DATE REPORTED AS PREVIOUS.

REACTIONS (1)
  - BREAST CANCER [None]
